FAERS Safety Report 17250832 (Version 1)
Quarter: 2020Q1

REPORT INFORMATION
  Report Type: Spontaneous
  Country: US (occurrence: US)
  Receive Date: 20200109
  Receipt Date: 20200109
  Transmission Date: 20200409
  Serious: No
  Sender: FDA-Public Use
  Company Number: NVSC2020US003084

PATIENT
  Sex: Male

DRUGS (2)
  1. AFINITOR [Suspect]
     Active Substance: EVEROLIMUS
     Indication: RENAL CANCER
     Dosage: 5 MG, QD
     Route: 048
     Dates: start: 20191119
  2. LENVIMA [Suspect]
     Active Substance: LENVATINIB
     Indication: RENAL CANCER
     Dosage: 18 MG, QD
     Route: 048
     Dates: start: 20191219

REACTIONS (6)
  - Axillary pain [Recovering/Resolving]
  - Eructation [Unknown]
  - Chest pain [Recovering/Resolving]
  - Back pain [Recovering/Resolving]
  - Dyspnoea [Recovering/Resolving]
  - Fatigue [Unknown]
